FAERS Safety Report 22790344 (Version 12)
Quarter: 2024Q2

REPORT INFORMATION
  Report Type: Spontaneous
  Country: GB (occurrence: GB)
  Receive Date: 20230805
  Receipt Date: 20240612
  Transmission Date: 20240715
  Serious: Yes (Hospitalization, Disabling, Other)
  Sender: FDA-Public Use
  Company Number: GB-SANDOZ-SDZ2023GB003000

PATIENT
  Age: 37 Year
  Sex: Male

DRUGS (9)
  1. ARIPIPRAZOLE [Suspect]
     Active Substance: ARIPIPRAZOLE
     Indication: Product used for unknown indication
     Dosage: 400 MILLIGRAM (VERY VERY HIGH- AT LEAST 400 MG, FOR YEARS)
     Route: 065
     Dates: start: 20090101
  2. OLANZAPINE [Suspect]
     Active Substance: OLANZAPINE
     Indication: Adverse drug reaction
     Dosage: 120 MILLIGRAM (VERY VERY HIGH)
     Route: 065
     Dates: start: 20140301
  3. OLANZAPINE [Suspect]
     Active Substance: OLANZAPINE
     Dosage: OCCLUSIVE DRESSING TECHNIQUE
     Route: 065
  4. ABILIFY MAINTENA [Suspect]
     Active Substance: ARIPIPRAZOLE
     Indication: Adverse drug reaction
     Dosage: VERY VERY HIGH- AT LEAST 400 MG, FOR YEARS
     Route: 065
     Dates: start: 20090101
  5. ARIPIPRAZOLE [Suspect]
     Active Substance: ARIPIPRAZOLE
     Indication: Product used for unknown indication
     Dosage: 400 MILLIGRAM
     Route: 065
     Dates: start: 20090101
  6. ARIPIPRAZOLE [Suspect]
     Active Substance: ARIPIPRAZOLE
     Dosage: VERY VERY HIGH- AT LEAST 400 MG, FOR YEARS
     Route: 065
  7. CLOZAPINE [Suspect]
     Active Substance: CLOZAPINE
     Indication: Product used for unknown indication
     Dosage: UNK (OCCLUSIVE DRESSING TECHNIQUE)
     Route: 065
  8. OLANZAPINE [Suspect]
     Active Substance: OLANZAPINE
     Indication: Product used for unknown indication
     Dosage: (OCCLUSIVE DRESSING TECHNIQUE)
     Route: 065
  9. OLANZAPINE [Suspect]
     Active Substance: OLANZAPINE
     Dosage: VERY VERY HIGH
     Route: 065
     Dates: start: 20140301

REACTIONS (23)
  - Diarrhoea [Not Recovered/Not Resolved]
  - Akathisia [Unknown]
  - Discomfort [Unknown]
  - Somnolence [Unknown]
  - Anxiety [Unknown]
  - Skin irritation [Unknown]
  - Pain [Unknown]
  - Pruritus [Unknown]
  - Musculoskeletal stiffness [Unknown]
  - Visual impairment [Unknown]
  - Personality change [Unknown]
  - Injection site pain [Unknown]
  - Diabetes mellitus [Unknown]
  - Scratch [Unknown]
  - Lethargy [Unknown]
  - Weight increased [Unknown]
  - Pollakiuria [Unknown]
  - Irritable bowel syndrome [Unknown]
  - Tension [Unknown]
  - Irritability [Unknown]
  - Loss of personal independence in daily activities [Unknown]
  - Product prescribing error [Unknown]
  - Product use in unapproved indication [Unknown]

NARRATIVE: CASE EVENT DATE: 20090101
